FAERS Safety Report 9986797 (Version 2)
Quarter: 2014Q2

REPORT INFORMATION
  Report Type: Report from Study
  Country: MX (occurrence: MX)
  Receive Date: 20140307
  Receipt Date: 20140408
  Transmission Date: 20141212
  Serious: Yes (Other)
  Sender: FDA-Public Use
  Company Number: PHHY2014MX028247

PATIENT
  Age: 90 Year
  Sex: Female

DRUGS (3)
  1. EXFORGE HCT [Suspect]
     Indication: HYPERTENSION
     Dosage: 1 TABLET (160/5/12.5 MG) DAILY
     Route: 048
     Dates: start: 201311, end: 20140128
  2. CINNARIZINE [Concomitant]
     Indication: CEREBROVASCULAR INSUFFICIENCY
     Dosage: 1 UKN, DAILY
     Dates: start: 1980
  3. B COMPLEX [Concomitant]
     Indication: DEPRESSED MOOD
     Dosage: 1 UKN, DAILY

REACTIONS (7)
  - Dyspnoea [Recovered/Resolved]
  - Blood pressure decreased [Recovered/Resolved]
  - Weight decreased [Unknown]
  - Diarrhoea [Unknown]
  - Malaise [Recovered/Resolved]
  - Depressed mood [Recovered/Resolved]
  - Hypersomnia [Recovered/Resolved]
